FAERS Safety Report 5764584-3 (Version None)
Quarter: 2008Q2

REPORT INFORMATION
  Report Type: 
  Country: None (occurrence: None)
  Receive Date: 20080610
  Receipt Date: 20080603
  Transmission Date: 20081010
  Serious: Yes (Life-Threatening, Hospitalization, Other)
  Sender: FDA-Public Use
  Company Number: JP-PFIZER INC-9927234

PATIENT
  Sex: Female
  Weight: 54 kg

DRUGS (3)
  1. HYDROXYZINE PAMOATE [Suspect]
     Indication: URTICARIA
     Dosage: DAILY DOSE:75MG-FREQ:DAILY
     Route: 048
     Dates: start: 19990328, end: 19990401
  2. HYDROXYZINE PAMOATE [Suspect]
     Indication: PRURIGO
  3. PARAMETHASONE [Suspect]
     Indication: PRURIGO
     Dosage: DAILY DOSE:6MG-FREQ:DAILY
     Dates: start: 19990328, end: 19990331

REACTIONS (9)
  - ELECTROCARDIOGRAM QT PROLONGED [None]
  - GENE MUTATION IDENTIFICATION TEST [None]
  - PALPITATIONS [None]
  - PREGNANCY [None]
  - SYNCOPE [None]
  - TINNITUS [None]
  - TORSADE DE POINTES [None]
  - VENTRICULAR ARRHYTHMIA [None]
  - VERTIGO [None]
